FAERS Safety Report 23326577 (Version 2)
Quarter: 2024Q1

REPORT INFORMATION
  Report Type: Spontaneous
  Country: US (occurrence: US)
  Receive Date: 20231221
  Receipt Date: 20240116
  Transmission Date: 20240410
  Serious: No
  Sender: FDA-Public Use
  Company Number: US-Prasco Laboratories-PRAS20230371

PATIENT
  Age: 52 Year
  Sex: Female
  Weight: 85 kg

DRUGS (4)
  1. ESTRADIOL [Suspect]
     Active Substance: ESTRADIOL
     Indication: Urinary tract infection
     Dosage: 1 GRAM, NIGHTLY FOR TWO WEEKS, FOLLOWED BY 2 TIMES PER WEEK
     Route: 067
     Dates: start: 20231214, end: 20231217
  2. ESTRADIOL [Suspect]
     Active Substance: ESTRADIOL
     Indication: Genitourinary syndrome of menopause
  3. ESTRADIOL [Suspect]
     Active Substance: ESTRADIOL
     Indication: Atrophic vulvovaginitis
  4. PYRIDIUM [Suspect]
     Active Substance: PHENAZOPYRIDINE
     Indication: Bladder pain
     Dosage: 200 MG, THREE TIMES DAILY AS NEEDED
     Route: 065
     Dates: start: 20231214, end: 20231217

REACTIONS (3)
  - Swelling [Recovered/Resolved]
  - Swelling face [Recovered/Resolved]
  - Off label use [None]

NARRATIVE: CASE EVENT DATE: 20231214
